FAERS Safety Report 8560021-4 (Version None)
Quarter: 2012Q3

REPORT INFORMATION
  Report Type: 
  Country: None (occurrence: None)
  Receive Date: 20120802
  Receipt Date: 20120730
  Transmission Date: 20120928
  Serious: No
  Sender: FDA-Public Use
  Company Number: JP-PFIZER INC-2012161011

PATIENT
  Age: 7 Year
  Sex: Female

DRUGS (2)
  1. GENOTROPIN [Suspect]
     Indication: VESICOURETERIC REFLUX
  2. GENOTROPIN [Suspect]
     Indication: DWARFISM
     Dosage: UNK
     Route: 058
     Dates: start: 20100903

REACTIONS (2)
  - OFF LABEL USE [None]
  - DRUG INEFFECTIVE FOR UNAPPROVED INDICATION [None]
